FAERS Safety Report 19482063 (Version 1)
Quarter: 2021Q2

REPORT INFORMATION
  Report Type: Spontaneous
  Country: US (occurrence: US)
  Receive Date: 20210630
  Receipt Date: 20210630
  Transmission Date: 20210717
  Serious: Yes (Other)
  Sender: FDA-Public Use
  Company Number: None

PATIENT
  Age: 66 Year
  Sex: Female
  Weight: 49.5 kg

DRUGS (1)
  1. ARTICAINE/EPINEPHRINE [Suspect]
     Active Substance: ARTICAINE\EPINEPHRINE

REACTIONS (6)
  - Somnolence [None]
  - Throat irritation [None]
  - Nasopharyngitis [None]
  - Oropharyngeal pain [None]
  - Muscle spasms [None]
  - Tremor [None]

NARRATIVE: CASE EVENT DATE: 20210623
